FAERS Safety Report 11595428 (Version 3)
Quarter: 2015Q4

REPORT INFORMATION
  Report Type: Report from Study
  Country: JP (occurrence: JP)
  Receive Date: 20151006
  Receipt Date: 20151211
  Transmission Date: 20160304
  Serious: Yes (Hospitalization)
  Sender: FDA-Public Use
  Company Number: JP-ALEXION PHARMACEUTICALS INC-A201503857

PATIENT
  Age: 1 Year
  Sex: Male

DRUGS (1)
  1. SOLIRIS [Suspect]
     Active Substance: ECULIZUMAB
     Indication: HAEMOLYTIC URAEMIC SYNDROME
     Dosage: 300 MG, ONCE 3 WEEKS
     Route: 042
     Dates: start: 20130621

REACTIONS (9)
  - Respiratory syncytial virus bronchitis [Recovered/Resolved]
  - Upper respiratory tract infection [Recovered/Resolved]
  - Injury [Recovered/Resolved]
  - Bronchitis viral [Recovered/Resolved]
  - Subcutaneous haematoma [Recovered/Resolved]
  - Streptococcus test positive [Recovering/Resolving]
  - Stomatitis [Recovered/Resolved]
  - Fall [Unknown]
  - Rash [Recovered/Resolved]

NARRATIVE: CASE EVENT DATE: 20140605
